FAERS Safety Report 5211976-7 (Version None)
Quarter: 2007Q1

REPORT INFORMATION
  Report Type: 
  Country: None (occurrence: None)
  Receive Date: 20070118
  Receipt Date: 20070117
  Transmission Date: 20070707
  Serious: Yes (Other)
  Sender: FDA-Public Use
  Company Number: JP-JPN-A200605295

PATIENT
  Age: 55 Year
  Sex: Female
  Weight: 57 kg

DRUGS (14)
  1. ZANTAC [Suspect]
     Indication: PREMEDICATION
     Dosage: 50MG PER DAY
     Route: 042
     Dates: start: 20061211, end: 20061211
  2. DECADRON [Suspect]
     Indication: PREMEDICATION
     Dosage: 20MG PER DAY
     Route: 042
     Dates: start: 20061211, end: 20061211
  3. KYTRIL [Suspect]
     Indication: PREMEDICATION
     Dosage: 3MG PER DAY
     Route: 042
     Dates: start: 20061211, end: 20061211
  4. UNKNOWN MEDICATION [Concomitant]
     Indication: PREMEDICATION
     Dosage: 20MG PER DAY
     Route: 042
     Dates: start: 20061211, end: 20061211
  5. PURSENNID [Concomitant]
     Indication: CONSTIPATION
     Dosage: 24MG PER DAY
     Route: 048
     Dates: start: 20061115
  6. MAGNESIUM OXIDE [Concomitant]
     Indication: CONSTIPATION
     Dosage: 1.5G PER DAY
     Route: 048
     Dates: start: 20061121
  7. FLOMOX [Concomitant]
     Dosage: 300MG PER DAY
     Route: 048
     Dates: start: 20061123, end: 20061129
  8. SOLANTAL [Concomitant]
     Dosage: 300MG PER DAY
     Route: 048
     Dates: start: 20061123, end: 20061129
  9. SLOW-FE [Concomitant]
     Route: 048
     Dates: start: 20061124
  10. SEISHOKU [Concomitant]
     Indication: PREMEDICATION
     Dosage: 100ML PER DAY
     Route: 042
     Dates: start: 20061211, end: 20061211
  11. RESTAMIN [Concomitant]
     Route: 048
  12. PACLITAXEL [Concomitant]
  13. PIRARUBICIN HYDROCHLORIDE [Concomitant]
  14. CARBOPLATIN [Concomitant]

REACTIONS (9)
  - BLOOD PRESSURE DECREASED [None]
  - COLD SWEAT [None]
  - DEPRESSED LEVEL OF CONSCIOUSNESS [None]
  - DYSPNOEA [None]
  - FEELING COLD [None]
  - HYPERSENSITIVITY [None]
  - LOSS OF CONSCIOUSNESS [None]
  - MALAISE [None]
  - VOMITING [None]
